FAERS Safety Report 9466882 (Version 8)
Quarter: 2014Q4

REPORT INFORMATION
  Report Type: Report from Study
  Country: ES (occurrence: ES)
  Receive Date: 20130820
  Receipt Date: 20141211
  Transmission Date: 20150529
  Serious: Yes (Death, Hospitalization, Other)
  Sender: FDA-Public Use
  Company Number: ES-VERTEX PHARMACEUTICALS INC-2013-008908

PATIENT

DRUGS (3)
  1. RIBAVIRIN. [Suspect]
     Active Substance: RIBAVIRIN
     Indication: CHRONIC HEPATITIS C
     Route: 065
  2. PEGYLATED INTERFERON NOS [Suspect]
     Active Substance: PEGINTERFERON ALFA-2A OR PEGINTERFERON ALFA-2B OR PEGINTERFERON BETA-1A OR PEGINTERFERON LAMBDA-1A
     Indication: CHRONIC HEPATITIS C
     Route: 065
  3. TELAPREVIR [Suspect]
     Active Substance: TELAPREVIR
     Indication: CHRONIC HEPATITIS C
     Dosage: UNK
     Route: 048

REACTIONS (13)
  - Adverse drug reaction [Recovered/Resolved]
  - Platelet count decreased [Recovered/Resolved]
  - Aplastic anaemia [Fatal]
  - Renal failure [Recovered/Resolved]
  - Rash [Recovered/Resolved]
  - Infection [Recovered/Resolved]
  - Anaemia [Recovered/Resolved]
  - Virologic failure [Unknown]
  - Neutropenia [Recovered/Resolved]
  - Condition aggravated [Unknown]
  - Toxic skin eruption [Recovered/Resolved]
  - Hospitalisation [Recovered/Resolved]
  - Hepatocellular carcinoma [Unknown]
